FAERS Safety Report 11206320 (Version 1)
Quarter: 2015Q2

REPORT INFORMATION
  Report Type: Report from Study
  Country: US (occurrence: US)
  Receive Date: 20150622
  Receipt Date: 20150622
  Transmission Date: 20150821
  Serious: Yes (Hospitalization)
  Sender: FDA-Public Use
  Company Number: US-ACTELION-A-US2015-119788

PATIENT
  Age: 71 Year
  Sex: Female

DRUGS (5)
  1. VENTAVIS [Suspect]
     Active Substance: ILOPROST
     Indication: PULMONARY ARTERIAL HYPERTENSION
     Dosage: 6 TIMES DAILY
     Route: 055
     Dates: start: 20121114
  2. ADCIRCA [Concomitant]
     Active Substance: TADALAFIL
  3. OPSUMIT [Concomitant]
     Active Substance: MACITENTAN
  4. TUSSIN [Concomitant]
     Active Substance: GUAIFENESIN
  5. FLONASE [Concomitant]
     Active Substance: FLUTICASONE PROPIONATE

REACTIONS (1)
  - Mitral valve incompetence [Recovered/Resolved]

NARRATIVE: CASE EVENT DATE: 20150529
